FAERS Safety Report 7690759-2 (Version None)
Quarter: 2011Q3

REPORT INFORMATION
  Report Type: 
  Country: None (occurrence: None)
  Receive Date: 20110812
  Receipt Date: 20110809
  Transmission Date: 20111222
  Serious: Yes (Hospitalization, Disabling, Other)
  Sender: FDA-Public Use
  Company Number: ACO_25802_2011

PATIENT
  Age: 71 Year
  Sex: Female
  Weight: 61.2 kg

DRUGS (3)
  1. AMPYRA [Suspect]
     Indication: GAIT DISTURBANCE
     Dosage: 10 MG, BID, ORAL
     Route: 048
     Dates: start: 20100901, end: 20101201
  2. ENALAPRIL MALEATE [Concomitant]
  3. THYROID THERAPY [Concomitant]

REACTIONS (6)
  - BLOOD POTASSIUM DECREASED [None]
  - MUSCLE SPASMS [None]
  - GASTROINTESTINAL INFECTION [None]
  - CONSTIPATION [None]
  - DYSSTASIA [None]
  - FALL [None]
